FAERS Safety Report 5937437-5 (Version None)
Quarter: 2008Q4

REPORT INFORMATION
  Report Type: 
  Country: None (occurrence: None)
  Receive Date: 20081031
  Receipt Date: 20081029
  Transmission Date: 20090506
  Serious: Yes (Hospitalization, Disabling, Other)
  Sender: FDA-Public Use
  Company Number: A0753281A

PATIENT
  Age: 29 Year
  Sex: Female

DRUGS (3)
  1. VALTREX [Suspect]
     Route: 048
     Dates: start: 20081018, end: 20081020
  2. NORVASC [Concomitant]
  3. BIRTH CONTROL [Concomitant]

REACTIONS (6)
  - APHASIA [None]
  - DYSARTHRIA [None]
  - DYSGRAPHIA [None]
  - ISCHAEMIC STROKE [None]
  - NERVOUSNESS [None]
  - SPEECH DISORDER [None]
